FAERS Safety Report 8528593 (Version 12)
Quarter: 2014Q3

REPORT INFORMATION
  Report Type: Report from Study
  Country: DK (occurrence: DK)
  Receive Date: 20120424
  Receipt Date: 20140731
  Transmission Date: 20150326
  Serious: Yes (Hospitalization)
  Sender: FDA-Public Use
  Company Number: PHHO2011DK020381

PATIENT

DRUGS (28)
  1. BLINDED ENALAPRIL [Suspect]
     Active Substance: ENALAPRIL
     Indication: CARDIAC FAILURE
     Dosage: CODE NOT BROKEN
     Route: 048
     Dates: start: 20110912, end: 20111130
  2. BURINEX [Suspect]
     Active Substance: BUMETANIDE
     Dosage: 4 MG+4 MG+4 MG+2 MG
     Route: 048
     Dates: start: 20140602
  3. BURINEX [Suspect]
     Active Substance: BUMETANIDE
     Dosage: 4 MG, QID
     Route: 048
     Dates: start: 20120406, end: 20130512
  4. BURINEX [Suspect]
     Active Substance: BUMETANIDE
     Dosage: 2 MG, QID
     Dates: start: 20130512
  5. METOPROLOL [Concomitant]
     Active Substance: METOPROLOL
     Dosage: 50 MG, UNK
     Route: 048
     Dates: start: 20130731
  6. BLINDED NO TREATMENT RECEIVED [Suspect]
     Active Substance: UNSPECIFIED INGREDIENT
     Indication: CARDIAC FAILURE
     Dosage: CODE NOT BROKEN
     Route: 048
     Dates: start: 20110912, end: 20111130
  7. BURINEX [Suspect]
     Active Substance: BUMETANIDE
     Dosage: 4 MG, TID
     Route: 042
     Dates: start: 20140528, end: 20140531
  8. FURIX [Suspect]
     Active Substance: FUROSEMIDE
     Dosage: 120 MG, TID
     Route: 048
     Dates: start: 20111226, end: 20120329
  9. SPIRONOLACTONE. [Concomitant]
     Active Substance: SPIRONOLACTONE
     Indication: CARDIAC FAILURE
     Dosage: 25 MG, QD
     Route: 048
     Dates: start: 20000128
  10. SPIRONOLACTONE. [Concomitant]
     Active Substance: SPIRONOLACTONE
     Dosage: 2 MG X 3
     Route: 048
     Dates: start: 20120521
  11. SPIRONOLACTONE. [Concomitant]
     Active Substance: SPIRONOLACTONE
     Dosage: 50 MG, QD
     Route: 048
     Dates: start: 20130504, end: 20130512
  12. SPIRONOLACTONE. [Concomitant]
     Active Substance: SPIRONOLACTONE
     Dosage: UNK
  13. DIGOXIN. [Concomitant]
     Active Substance: DIGOXIN
     Indication: CARDIAC FAILURE
     Dosage: 187.5 UG, QD
     Dates: start: 20080519, end: 20111220
  14. HYDROCHLOROTHIAZIDE. [Concomitant]
     Active Substance: HYDROCHLOROTHIAZIDE
     Indication: CARDIAC FAILURE
     Dosage: 2.5 MG, QD
     Dates: start: 20120327, end: 20120329
  15. FURIX [Suspect]
     Active Substance: FUROSEMIDE
     Indication: CARDIAC FAILURE
     Dosage: 120 + 80 + 120 MG
     Dates: start: 20111213, end: 20111220
  16. FURIX [Suspect]
     Active Substance: FUROSEMIDE
     Dosage: UNK
     Dates: start: 20111214
  17. ZAROXOLYN [Suspect]
     Active Substance: METOLAZONE
     Indication: CARDIAC FAILURE
     Dosage: 2.5 MG, QD
     Route: 048
     Dates: start: 20111205, end: 20111208
  18. BLINDED ENALAPRIL [Suspect]
     Active Substance: ENALAPRIL
     Dosage: CODE NOT BROKEN
     Route: 048
     Dates: start: 20111221
  19. BLINDED NO TREATMENT RECEIVED [Suspect]
     Active Substance: UNSPECIFIED INGREDIENT
     Dosage: CODE NOT BROKEN
     Route: 048
     Dates: start: 20111221
  20. BURINEX [Suspect]
     Active Substance: BUMETANIDE
     Indication: CARDIAC FAILURE
     Dosage: 8 MG, UNK
     Route: 042
     Dates: start: 20111203, end: 20111213
  21. WARFARIN [Concomitant]
     Active Substance: WARFARIN
     Indication: CARDIAC FAILURE
     Dosage: ON DEMAND
     Route: 048
     Dates: start: 199310, end: 20131010
  22. METOPROLOL [Concomitant]
     Active Substance: METOPROLOL
     Indication: CARDIAC FAILURE
     Dosage: 200 MG, QD
     Route: 048
     Dates: start: 20070808
  23. BLINDED ALISKIREN [Suspect]
     Active Substance: ALISKIREN
     Dosage: CODE NOT BROKEN
     Route: 048
     Dates: start: 20111221
  24. DIGOXIN. [Concomitant]
     Active Substance: DIGOXIN
     Dosage: 187.5 UG, UNK
     Route: 048
     Dates: start: 20111226
  25. SIMVASTATIN. [Concomitant]
     Active Substance: SIMVASTATIN
     Indication: HYPERCHOLESTEROLAEMIA
     Dosage: 40 MG, QD
     Route: 048
     Dates: start: 20091202
  26. BLINDED ALISKIREN [Suspect]
     Active Substance: ALISKIREN
     Indication: CARDIAC FAILURE
     Dosage: CODE NOT BROKEN
     Route: 048
     Dates: start: 20110912, end: 20111130
  27. BURINEX [Suspect]
     Active Substance: BUMETANIDE
     Dosage: 2 MG, QID
     Route: 042
     Dates: start: 20111203, end: 20111213
  28. SPIRONOLACTONE. [Concomitant]
     Active Substance: SPIRONOLACTONE
     Dosage: 25 MG, UNK
     Route: 048
     Dates: start: 20120521

REACTIONS (3)
  - Dizziness [Recovered/Resolved]
  - Cardiac failure [Recovered/Resolved]
  - Blood creatinine increased [Recovered/Resolved]

NARRATIVE: CASE EVENT DATE: 20111130
